FAERS Safety Report 17037400 (Version 4)
Quarter: 2020Q3

REPORT INFORMATION
  Report Type: Spontaneous
  Country: US (occurrence: US)
  Receive Date: 20191115
  Receipt Date: 20200720
  Transmission Date: 20201102
  Serious: No
  Sender: FDA-Public Use
  Company Number: US-PFIZER INC-2019453132

PATIENT
  Age: 56 Year
  Sex: Female

DRUGS (1)
  1. XELJANZ XR [Suspect]
     Active Substance: TOFACITINIB CITRATE
     Dosage: 11 MG, UNK
     Dates: start: 201908

REACTIONS (6)
  - Pain in extremity [Unknown]
  - Bronchitis [Unknown]
  - Influenza [Unknown]
  - Liver disorder [Unknown]
  - Nasal congestion [Unknown]
  - Headache [Not Recovered/Not Resolved]
